FAERS Safety Report 23797882 (Version 1)
Quarter: 2024Q2

REPORT INFORMATION
  Report Type: Spontaneous
  Country: CN (occurrence: CN)
  Receive Date: 20240430
  Receipt Date: 20240430
  Transmission Date: 20240716
  Serious: Yes (Other)
  Sender: FDA-Public Use
  Company Number: CN-Jiangsu Hengrui Medicine Co., Ltd.-2156263

PATIENT
  Age: 73 Year
  Sex: Male
  Weight: 44 kg

DRUGS (1)
  1. OXALIPLATIN [Suspect]
     Active Substance: OXALIPLATIN
     Indication: Gastric cancer
     Route: 041
     Dates: start: 20240316, end: 20240319

REACTIONS (1)
  - Temporomandibular pain and dysfunction syndrome [Recovering/Resolving]

NARRATIVE: CASE EVENT DATE: 20240319
